FAERS Safety Report 8515171-5 (Version None)
Quarter: 2012Q3

REPORT INFORMATION
  Report Type: 
  Country: None (occurrence: None)
  Receive Date: 20120717
  Receipt Date: 20120711
  Transmission Date: 20120928
  Serious: Yes (Hospitalization)
  Sender: FDA-Public Use
  Company Number: US-GLAXOSMITHKLINE-A0984273A

PATIENT
  Age: 73 Year
  Sex: Male

DRUGS (3)
  1. VOTRIENT [Suspect]
     Indication: RENAL CELL CARCINOMA
     Dosage: 800MG PER DAY
     Route: 048
     Dates: start: 20120620
  2. GLYBURIDE [Concomitant]
  3. PREVACID [Concomitant]

REACTIONS (4)
  - PULMONARY THROMBOSIS [None]
  - PLEURAL EFFUSION [None]
  - THROMBOSIS [None]
  - DYSPNOEA [None]
